FAERS Safety Report 17109672 (Version 1)
Quarter: 2019Q4

REPORT INFORMATION
  Report Type: Spontaneous
  Country: US (occurrence: US)
  Receive Date: 20191204
  Receipt Date: 20191204
  Transmission Date: 20200122
  Serious: Yes (Death, Hospitalization, Other)
  Sender: FDA-Public Use
  Company Number: US-TEVA-2019-US-1146540

PATIENT
  Age: 26 Year
  Sex: Female

DRUGS (7)
  1. IDARUBICIN [Suspect]
     Active Substance: IDARUBICIN
     Indication: ACUTE MYELOID LEUKAEMIA
     Dosage: 7+3 INDUCTION CHEMOTHERAPY
     Route: 065
  2. HYDROXYCARBAMIDE [Suspect]
     Active Substance: HYDROXYUREA
     Indication: SICKLE CELL DISEASE
     Dosage: APPROXIMATELY FOR 26 MONTHS
     Route: 065
  3. MEROPENEM. [Suspect]
     Active Substance: MEROPENEM
     Indication: ANTIBIOTIC THERAPY
     Route: 065
  4. CYTARABINE. [Suspect]
     Active Substance: CYTARABINE
     Indication: ACUTE MYELOID LEUKAEMIA
     Dosage: 7+3 INDUCTION CHEMOTHERAPY
     Route: 065
  5. KETOROLAC [Suspect]
     Active Substance: KETOROLAC TROMETHAMINE
     Indication: THROMBOPHLEBITIS SUPERFICIAL
     Route: 065
  6. VANCOMYCIN [Suspect]
     Active Substance: VANCOMYCIN
     Indication: ANTIBIOTIC THERAPY
     Route: 065
  7. VORICONAZOLE. [Concomitant]
     Active Substance: VORICONAZOLE
     Indication: ANTIBIOTIC THERAPY
     Route: 065

REACTIONS (9)
  - Acute kidney injury [Unknown]
  - Drug ineffective [Unknown]
  - Nausea [Unknown]
  - Hypotension [Unknown]
  - Febrile neutropenia [Unknown]
  - Myelodysplastic syndrome [Fatal]
  - Sepsis [Unknown]
  - Acute myeloid leukaemia [Fatal]
  - Vomiting [Unknown]
